FAERS Safety Report 9272621 (Version 1)
Quarter: 2013Q2

REPORT INFORMATION
  Report Type: Spontaneous
  Country: US (occurrence: US)
  Receive Date: 20130506
  Receipt Date: 20130506
  Transmission Date: 20140414
  Serious: No
  Sender: FDA-Public Use
  Company Number: US-ASTRAZENECA-2013SE02681

PATIENT
  Age: 26970 Day
  Sex: Female

DRUGS (7)
  1. PRILOSEC OTC [Suspect]
     Route: 048
     Dates: start: 20130106
  2. SIMVASTATIN [Concomitant]
     Dosage: UNKNOWN
  3. GLUCOPHAGE [Concomitant]
     Dosage: UNKNOWN
  4. METFORMIN [Concomitant]
     Dosage: UNKNOWN
  5. CLARITIN [Concomitant]
     Dosage: UNKNOWN
  6. VITAMINS NOS [Concomitant]
     Dosage: UNKNOWN
  7. CARDIOVASCULAR SYSTEM DRUGS [Concomitant]
     Dosage: UNKNOWN

REACTIONS (1)
  - Dysgeusia [Recovered/Resolved]
